FAERS Safety Report 6931086-8 (Version None)
Quarter: 2010Q3

REPORT INFORMATION
  Report Type: 
  Country: None (occurrence: None)
  Receive Date: 20100817
  Receipt Date: 20100817
  Transmission Date: 20110219
  Serious: Yes (Life-Threatening, Hospitalization)
  Sender: FDA-Public Use
  Company Number: None

PATIENT
  Age: 86 Year
  Sex: Female
  Weight: 60.3284 kg

DRUGS (24)
  1. ARAVA [Suspect]
     Indication: RHEUMATOID ARTHRITIS
     Dosage: 5 TIMES A WEEK PO
     Route: 048
     Dates: start: 20091119, end: 20100802
  2. ACETAMINOPHEN [Concomitant]
  3. BONIVA [Concomitant]
  4. UNIRETIC [Concomitant]
  5. TOPROL-XL [Concomitant]
  6. KLOR-CON [Concomitant]
  7. CALCIUM + VIT D [Concomitant]
  8. PREDNISONE [Concomitant]
  9. PLAQUENIL [Concomitant]
  10. SALSALATE [Concomitant]
  11. COMPAZINE [Concomitant]
  12. DIPHENHYDRAMINE [Concomitant]
  13. FUROSEMIDE [Concomitant]
  14. ACETAMINOPHEN [Concomitant]
  15. ONDANSETRON [Concomitant]
  16. SODIUM CHLORIDE [Concomitant]
  17. CEFEPIME [Concomitant]
  18. PANTOPRAZOLE [Concomitant]
  19. MULTI-VITAMIN [Concomitant]
  20. OXYCODONE HCL AND ACETAMINOPHEN [Concomitant]
  21. MORPHINE [Concomitant]
  22. BUMETANIDE [Concomitant]
  23. METOPROLOL [Concomitant]
  24. HYDROMORPHONE [Concomitant]

REACTIONS (1)
  - PANCYTOPENIA [None]
